FAERS Safety Report 8078056-7 (Version None)
Quarter: 2012Q1

REPORT INFORMATION
  Report Type: 
  Country: None (occurrence: None)
  Receive Date: 20120127
  Receipt Date: 20110111
  Transmission Date: 20120608
  Serious: No
  Sender: FDA-Public Use
  Company Number: US-ABBOTT-11P-163-0696018-00

PATIENT
  Sex: Male
  Weight: 113.5 kg

DRUGS (16)
  1. LASIX [Concomitant]
     Indication: CARDIAC DISORDER
     Route: 048
  2. LEXAPRO [Concomitant]
     Indication: ANXIETY
  3. HUMIRA [Suspect]
     Indication: DIVERTICULITIS
  4. TRICOR [Concomitant]
     Indication: BLOOD CHOLESTEROL INCREASED
     Route: 048
  5. LEXAPRO [Concomitant]
     Indication: DEPRESSION
     Route: 048
  6. ASPIRIN [Concomitant]
     Indication: CARDIAC DISORDER
     Route: 048
  7. METOPROLOL TARTRATE [Concomitant]
     Indication: CARDIAC DISORDER
     Route: 048
  8. HALCION [Concomitant]
     Indication: SLEEP APNOEA SYNDROME
     Route: 048
  9. ANTIBIOTICS [Concomitant]
     Indication: INFECTION
     Route: 048
  10. HUMIRA [Suspect]
     Indication: PSORIASIS
  11. MERCAPTOPURINE [Concomitant]
     Indication: COLITIS ULCERATIVE
     Route: 048
  12. MULTI-VITAMIN [Concomitant]
     Indication: VITAMIN SUPPLEMENTATION
     Route: 048
  13. HUMIRA [Suspect]
     Indication: COLITIS ULCERATIVE
     Route: 058
     Dates: start: 20101201
  14. HUMIRA [Suspect]
     Indication: ARTHRALGIA
  15. RAMIPRIL [Concomitant]
     Indication: HYPERTENSION
     Dosage: QD
     Route: 048
  16. POTASSIUM [Concomitant]
     Indication: MINERAL SUPPLEMENTATION
     Route: 048

REACTIONS (4)
  - INAPPROPRIATE SCHEDULE OF DRUG ADMINISTRATION [None]
  - STRESS [None]
  - FREQUENT BOWEL MOVEMENTS [None]
  - SINUS HEADACHE [None]
